FAERS Safety Report 18081997 (Version 2)
Quarter: 2020Q3

REPORT INFORMATION
  Report Type: Spontaneous
  Country: GB (occurrence: GB)
  Receive Date: 20200729
  Receipt Date: 20200819
  Transmission Date: 20201103
  Serious: Yes (Other)
  Sender: FDA-Public Use
  Company Number: GB-AUROBINDO-AUR-APL-2020-036606

PATIENT
  Age: 52 Year
  Sex: Female

DRUGS (3)
  1. BENDROFLUAZIDE TABLETS [Suspect]
     Active Substance: BENDROFLUMETHIAZIDE
     Indication: PRODUCT USED FOR UNKNOWN INDICATION
     Dosage: UNK
     Route: 048
     Dates: start: 2005, end: 200611
  2. ATENOLOL. [Suspect]
     Active Substance: ATENOLOL
     Indication: PRODUCT USED FOR UNKNOWN INDICATION
     Dosage: UNK
     Route: 065
     Dates: start: 2005, end: 200611
  3. NAPROXEN TABLETS 500 MG [Interacting]
     Active Substance: NAPROXEN
     Indication: BACK DISORDER
     Dosage: 500 MILLIGRAM, TWO TIMES A DAY
     Route: 048

REACTIONS (2)
  - Myocardial infarction [Unknown]
  - Blood potassium decreased [Unknown]

NARRATIVE: CASE EVENT DATE: 2006
